FAERS Safety Report 8090834-7 (Version None)
Quarter: 2012Q1

REPORT INFORMATION
  Report Type: 
  Country: None (occurrence: None)
  Receive Date: 20120125
  Receipt Date: 20120116
  Transmission Date: 20120608
  Serious: Yes (Other)
  Sender: FDA-Public Use
  Company Number: 1150476

PATIENT
  Age: 66 Year
  Sex: Male

DRUGS (9)
  1. METHOTREXATE [Suspect]
     Indication: RHEUMATOID ARTHRITIS
     Dosage: UNKNOWN
  2. FERROUS FUMARATE [Concomitant]
  3. HYDROCORTISONE [Concomitant]
  4. RISEDRONATE SODIUM [Concomitant]
  5. CALCIUM CARBONATE [Concomitant]
  6. LACTULOSE [Concomitant]
  7. SPIRONOLACTONE [Concomitant]
  8. HYDROXYCHLOROQUINE SULFATE [Concomitant]
  9. PROPRANOLOL [Concomitant]

REACTIONS (2)
  - LIVER FUNCTION TEST ABNORMAL [None]
  - NODULAR REGENERATIVE HYPERPLASIA [None]
